FAERS Safety Report 13925830 (Version 1)
Quarter: 2017Q3

REPORT INFORMATION
  Report Type: Spontaneous
  Country: US (occurrence: US)
  Receive Date: 20170831
  Receipt Date: 20170831
  Transmission Date: 20171127
  Serious: Yes (Other)
  Sender: FDA-Public Use
  Company Number: US-FRESENIUS KABI-FK201707324

PATIENT
  Age: 28 Year
  Sex: Female

DRUGS (5)
  1. DIPHENHYDRAMINE INJECTION (MANUFACTURER UNKNOWN) [Suspect]
     Active Substance: DIPHENHYDRAMINE
     Indication: PRURITUS GENERALISED
     Route: 042
  2. PITOCIN [Concomitant]
     Active Substance: OXYTOCIN
     Indication: UTERINE HYPOTONUS
     Route: 065
  3. FENTANYL. [Concomitant]
     Active Substance: FENTANYL
     Indication: PRODUCT USED FOR UNKNOWN INDICATION
     Route: 008
  4. MISOPROSTOL. [Concomitant]
     Active Substance: MISOPROSTOL
     Indication: LABOUR INDUCTION
     Route: 065
  5. FENTANYL. [Concomitant]
     Active Substance: FENTANYL
     Route: 008

REACTIONS (4)
  - Maternal drugs affecting foetus [Recovered/Resolved]
  - Meconium in amniotic fluid [Recovered/Resolved]
  - Tachycardia foetal [Recovered/Resolved]
  - Uterine contractions abnormal [Recovered/Resolved]
